FAERS Safety Report 8196185-4 (Version None)
Quarter: 2012Q1

REPORT INFORMATION
  Report Type: 
  Country: None (occurrence: None)
  Receive Date: 20120307
  Receipt Date: 20120307
  Transmission Date: 20120608
  Serious: No
  Sender: FDA-Public Use
  Company Number: None

PATIENT
  Age: 29 Year
  Sex: Female

DRUGS (2)
  1. COPAXONE [Suspect]
     Dates: start: 20080201, end: 20080611
  2. FUCOTHIN [Suspect]
     Dates: start: 20080501, end: 20080601

REACTIONS (13)
  - URINARY RETENTION [None]
  - SPIDER NAEVUS [None]
  - MEMORY IMPAIRMENT [None]
  - LIVER DISORDER [None]
  - WEIGHT DECREASED [None]
  - RASH ERYTHEMATOUS [None]
  - MULTIPLE SCLEROSIS [None]
  - RASH PRURITIC [None]
  - HEPATIC NECROSIS [None]
  - FAECAL INCONTINENCE [None]
  - CONDITION AGGRAVATED [None]
  - BURNING SENSATION [None]
  - AUTOIMMUNE HEPATITIS [None]
